FAERS Safety Report 9198772 (Version 1)
Quarter: 2013Q1

REPORT INFORMATION
  Report Type: Spontaneous
  Country: US (occurrence: US)
  Receive Date: 20130329
  Receipt Date: 20130329
  Transmission Date: 20140127
  Serious: Yes (Hospitalization)
  Sender: FDA-Public Use
  Company Number: US-GENZYME-FABR-1003134

PATIENT
  Age: 55 None
  Sex: Male

DRUGS (3)
  1. FABRAZYME [Suspect]
     Indication: FABRY^S DISEASE
     Dosage: 80 MG, Q2W
     Route: 042
     Dates: start: 20050629, end: 20100216
  2. FABRAZYME [Suspect]
     Dosage: 80 MG, Q2W
     Route: 042
     Dates: start: 20120705
  3. REPLAGAL [Concomitant]
     Indication: FABRY^S DISEASE
     Dosage: UNK
     Route: 065
     Dates: start: 2010

REACTIONS (6)
  - Oesophageal haemorrhage [Unknown]
  - Rectal haemorrhage [Unknown]
  - Varicose vein ruptured [Unknown]
  - Brain hypoxia [Unknown]
  - Respiratory disorder [Unknown]
  - Chest discomfort [Recovered/Resolved]
